FAERS Safety Report 10908832 (Version 1)
Quarter: 2015Q1

REPORT INFORMATION
  Report Type: Spontaneous
  Country: US (occurrence: None)
  Receive Date: 20150310
  Receipt Date: 20150310
  Transmission Date: 20150721
  Serious: Yes (Life-Threatening, Disabling, Other)
  Sender: FDA-Public Use
  Company Number: None

PATIENT

DRUGS (1)
  1. BETAMETHASONE [Suspect]
     Active Substance: BETAMETHASONE

REACTIONS (6)
  - Bacterial test positive [None]
  - Suspected transmission of an infectious agent via product [None]
  - Product quality issue [None]
  - Product contamination microbial [None]
  - Pyrexia [None]
  - Headache [None]
